FAERS Safety Report 11482822 (Version 3)
Quarter: 2019Q2

REPORT INFORMATION
  Report Type: Spontaneous
  Country: US (occurrence: US)
  Receive Date: 20150909
  Receipt Date: 20190521
  Transmission Date: 20190711
  Serious: No
  Sender: FDA-Public Use
  Company Number: US-JAZZ-JPI-P-033271

PATIENT
  Sex: Female
  Weight: 83.9 kg

DRUGS (10)
  1. XYREM [Suspect]
     Active Substance: SODIUM OXYBATE
     Dosage: 3.5 G, BID
     Route: 048
     Dates: start: 20121217, end: 2013
  2. TOPIRAMATE. [Concomitant]
     Active Substance: TOPIRAMATE
  3. MODAFINIL. [Concomitant]
     Active Substance: MODAFINIL
     Indication: SOMNOLENCE
     Dosage: 400 MG, BID
  4. TYLENOL EXTRA STRENGTH [Concomitant]
     Active Substance: ACETAMINOPHEN
  5. XYREM [Suspect]
     Active Substance: SODIUM OXYBATE
     Indication: NARCOLEPSY
     Dosage: UNKNOWN SINGLE (UNSPECIFIED DOSE)
     Route: 048
     Dates: start: 2012, end: 20121216
  6. MIRAPEX [Concomitant]
     Active Substance: PRAMIPEXOLE DIHYDROCHLORIDE
     Indication: SLEEP SEX
     Dosage: .75 MG, QD
  7. VICODIN [Concomitant]
     Active Substance: ACETAMINOPHEN\HYDROCODONE BITARTRATE
  8. XYREM [Suspect]
     Active Substance: SODIUM OXYBATE
     Indication: CATAPLEXY
     Dosage: 2.25 G, BID
     Route: 048
     Dates: start: 20120417, end: 2012
  9. XYREM [Suspect]
     Active Substance: SODIUM OXYBATE
     Dosage: 4.5 G,BID
     Route: 048
     Dates: start: 201308
  10. DEXAMFETAMINE [Concomitant]
     Active Substance: DEXTROAMPHETAMINE

REACTIONS (10)
  - Sleep talking [Unknown]
  - Snoring [Not Recovered/Not Resolved]
  - Memory impairment [Unknown]
  - Unevaluable event [Not Recovered/Not Resolved]
  - Sleep-related eating disorder [Recovered/Resolved]
  - Abnormal dreams [Not Recovered/Not Resolved]
  - Somnolence [Unknown]
  - Somnambulism [Unknown]
  - Headache [Not Recovered/Not Resolved]
  - Sleep sex [Recovered/Resolved]
